FAERS Safety Report 6373235-9 (Version None)
Quarter: 2009Q3

REPORT INFORMATION
  Report Type: 
  Country: None (occurrence: None)
  Receive Date: 20090924
  Receipt Date: 20090209
  Transmission Date: 20100115
  Serious: Yes (Other)
  Sender: FDA-Public Use
  Company Number: US-ASTRAZENECA-2009UW00765

PATIENT
  Age: 9027 Day
  Sex: Female
  Weight: 47.6 kg

DRUGS (3)
  1. SEROQUEL [Suspect]
     Indication: PANIC ATTACK
     Dosage: 50 MG
     Route: 048
     Dates: start: 20081222, end: 20090107
  2. SEROQUEL [Suspect]
     Indication: AGITATED DEPRESSION
     Dosage: 50 MG
     Route: 048
     Dates: start: 20081222, end: 20090107
  3. WELLBUTRIN [Concomitant]
     Indication: DEPRESSION
     Route: 048
     Dates: start: 20080508

REACTIONS (2)
  - ADVERSE DRUG REACTION [None]
  - TARDIVE DYSKINESIA [None]
